FAERS Safety Report 6633557-0 (Version None)
Quarter: 2010Q1

REPORT INFORMATION
  Report Type: 
  Country: None (occurrence: None)
  Receive Date: 20100312
  Receipt Date: 20100208
  Transmission Date: 20100710
  Serious: No
  Sender: FDA-Public Use
  Company Number: US-ABBOTT-10P-163-0625826-00

PATIENT

DRUGS (1)
  1. ERYTHROMYCIN BASE [Suspect]
     Indication: INFECTION

REACTIONS (1)
  - NAUSEA [None]
